FAERS Safety Report 15315284 (Version 3)
Quarter: 2019Q2

REPORT INFORMATION
  Report Type: Spontaneous
  Country: US (occurrence: US)
  Receive Date: 20180824
  Receipt Date: 20190509
  Transmission Date: 20190711
  Serious: Yes (Other)
  Sender: FDA-Public Use
  Company Number: US-SA-2018SA230897

PATIENT
  Age: 48 Year
  Sex: Female

DRUGS (1)
  1. DUPIXENT [Suspect]
     Active Substance: DUPILUMAB
     Dosage: UNK
     Dates: start: 201802

REACTIONS (2)
  - Product dose omission [Unknown]
  - Pneumonia [Unknown]

NARRATIVE: CASE EVENT DATE: 20190423
